FAERS Safety Report 5477817-8 (Version None)
Quarter: 2007Q4

REPORT INFORMATION
  Report Type: 
  Country: None (occurrence: None)
  Receive Date: 20071004
  Receipt Date: 20070925
  Transmission Date: 20080405
  Serious: Yes (Hospitalization)
  Sender: FDA-Public Use
  Company Number: US-GILEAD-2007-0013545

PATIENT
  Sex: Female
  Weight: 113.05 kg

DRUGS (10)
  1. LETAIRIS [Suspect]
     Indication: PULMONARY HYPERTENSION
     Route: 048
     Dates: start: 20070815
  2. SINGULAIR [Concomitant]
     Route: 048
  3. ZOCOR [Concomitant]
     Route: 048
  4. AMOXICILLIN [Concomitant]
     Route: 048
  5. LASIX [Concomitant]
     Route: 048
  6. GLIPIZIDE [Concomitant]
     Route: 048
  7. ALBUTEROL [Concomitant]
     Route: 055
  8. NEXIUM [Concomitant]
     Route: 048
  9. SPIRONOLACTONE [Concomitant]
     Route: 048
  10. ALTACE [Concomitant]
     Route: 048

REACTIONS (3)
  - ARRHYTHMIA [None]
  - HYPOTENSION [None]
  - OEDEMA [None]
